FAERS Safety Report 11238019 (Version 1)
Quarter: 2015Q3

REPORT INFORMATION
  Report Type: Spontaneous
  Country: DE (occurrence: DE)
  Receive Date: 20150703
  Receipt Date: 20150703
  Transmission Date: 20151125
  Serious: Yes (Hospitalization, Other)
  Sender: FDA-Public Use
  Company Number: DE-BRISTOL-MYERS SQUIBB COMPANY-BMS-2015-019988

PATIENT
  Age: 75 Year
  Sex: Male

DRUGS (1)
  1. SPRYCEL [Suspect]
     Active Substance: DASATINIB
     Indication: CHRONIC MYELOID LEUKAEMIA
     Dosage: 100 MG, QD
     Route: 065
     Dates: start: 2010, end: 201503

REACTIONS (15)
  - Aspiration pleural cavity [Unknown]
  - Ascites [Recovering/Resolving]
  - Depression [Unknown]
  - Weight decreased [Unknown]
  - Mitral valve incompetence [Unknown]
  - General physical health deterioration [Unknown]
  - Diverticulum [Unknown]
  - Adenoma benign [Unknown]
  - Pulmonary hypertension [Unknown]
  - Polypectomy [Unknown]
  - Aortic valve incompetence [Unknown]
  - Pericardial effusion [Unknown]
  - Tricuspid valve incompetence [Unknown]
  - Chylothorax [Recovering/Resolving]
  - Enteritis [Unknown]

NARRATIVE: CASE EVENT DATE: 20150318
